FAERS Safety Report 11311567 (Version 3)
Quarter: 2015Q4

REPORT INFORMATION
  Report Type: Report from Study
  Country: JP (occurrence: JP)
  Receive Date: 20150727
  Receipt Date: 20151121
  Transmission Date: 20160304
  Serious: Yes (Hospitalization)
  Sender: FDA-Public Use
  Company Number: JP-BRISTOL-MYERS SQUIBB COMPANY-BMS-2015-048463

PATIENT
  Age: 68 Year
  Sex: Female
  Weight: 60 kg

DRUGS (20)
  1. THYRADIN-S [Concomitant]
     Active Substance: LEVOTHYROXINE
     Indication: HYPOTHYROIDISM
     Dosage: 62.5 ?G, QD
     Route: 048
     Dates: start: 20140714
  2. HALFDIGOXIN [Concomitant]
     Active Substance: DIGOXIN
     Indication: ANGINA PECTORIS
  3. AMLODIPINE                         /00972402/ [Concomitant]
     Active Substance: AMLODIPINE BESYLATE
     Dosage: 5 UNK, UNK
     Route: 065
  4. ITOROL [Concomitant]
     Active Substance: ISOSORBIDE MONONITRATE
     Indication: ANGINA PECTORIS
     Dosage: 20 MG, BID
     Route: 048
  5. APIXABAN [Suspect]
     Active Substance: APIXABAN
     Indication: THROMBOSIS PROPHYLAXIS
     Dosage: 5 MG, BID
     Route: 048
     Dates: start: 20140714, end: 20141021
  6. HALFDIGOXIN [Concomitant]
     Active Substance: DIGOXIN
     Indication: HYPERTENSION
     Dosage: 0.125 MG, QD
     Route: 048
     Dates: end: 20150215
  7. AMLODIPINE                         /00972402/ [Concomitant]
     Active Substance: AMLODIPINE BESYLATE
     Indication: HYPERTENSION
     Dosage: 2.5 MG, QD
     Route: 048
     Dates: end: 20150208
  8. XALATAN [Concomitant]
     Active Substance: LATANOPROST
     Indication: NORMAL TENSION GLAUCOMA
  9. MAGMITT [Concomitant]
     Active Substance: MAGNESIUM OXIDE
     Indication: CONSTIPATION
  10. ONEALFA [Concomitant]
     Active Substance: ALFACALCIDOL
     Indication: HYPOTHYROIDISM
     Dosage: 0.25 ?G, BID
     Route: 048
     Dates: start: 20140714
  11. ACECOL                             /01140001/ [Concomitant]
     Indication: HYPERTENSION
     Dosage: 2 MG, QD
     Route: 048
  12. HYALEIN [Concomitant]
     Active Substance: HYALURONATE SODIUM
     Indication: CATARACT
     Dosage: UNK, QID
     Route: 048
  13. HALFDIGOXIN [Concomitant]
     Active Substance: DIGOXIN
     Indication: HYPOTHYROIDISM
     Dosage: 0.062 MG, UNK
     Route: 065
  14. RHYTHMY [Concomitant]
     Active Substance: RILMAZAFONE HYDROCHLORIDE
     Indication: INSOMNIA
     Dosage: 1 MG, QD
     Route: 048
     Dates: start: 20140723, end: 20140724
  15. MAGMITT [Concomitant]
     Active Substance: MAGNESIUM OXIDE
     Indication: BREAST CANCER
     Dosage: 330 MG, QD
     Route: 048
     Dates: start: 20140725, end: 20140810
  16. HYALEIN [Concomitant]
     Active Substance: HYALURONATE SODIUM
     Indication: NORMAL TENSION GLAUCOMA
  17. SPIRONOLACTONE. [Concomitant]
     Active Substance: SPIRONOLACTONE
     Indication: HYPERTENSION
     Dosage: 25 MG, QD
     Route: 048
  18. REBAMIPIDE [Concomitant]
     Active Substance: REBAMIPIDE
     Indication: CHRONIC GASTRITIS
     Dosage: 100 MG, TID
     Route: 048
  19. CALFINA [Concomitant]
     Active Substance: ALFACALCIDOL
     Indication: HYPOTHYROIDISM
     Dosage: 0.25 ?G, BID
     Route: 048
     Dates: start: 20140722, end: 20140814
  20. XALATAN [Concomitant]
     Active Substance: LATANOPROST
     Indication: CATARACT
     Dosage: UNK, QD
     Route: 047

REACTIONS (2)
  - Hypertension [Recovering/Resolving]
  - Surgery [Unknown]

NARRATIVE: CASE EVENT DATE: 20141022
